FAERS Safety Report 16910154 (Version 1)
Quarter: 2019Q4

REPORT INFORMATION
  Report Type: Spontaneous
  Country: IN (occurrence: IN)
  Receive Date: 20191011
  Receipt Date: 20191011
  Transmission Date: 20200122
  Serious: Yes (Other)
  Sender: FDA-Public Use
  Company Number: IN-ALLERGAN-1940536US

PATIENT
  Sex: Female

DRUGS (5)
  1. ESTRADIOL VALERATE. [Suspect]
     Active Substance: ESTRADIOL VALERATE
     Indication: HORMONE REPLACEMENT THERAPY
     Route: 048
  2. DYDROGESTERONE [Suspect]
     Active Substance: DYDROGESTERONE
     Indication: LUTEAL PHASE DEFICIENCY
     Route: 048
  3. GONADOTROPIN-RELEASING HORMONES [Suspect]
     Active Substance: GONADORELIN
     Indication: HORMONE REPLACEMENT THERAPY
     Route: 065
  4. PROGESTERONE UNK [Suspect]
     Active Substance: PROGESTERONE
     Indication: LUTEAL PHASE DEFICIENCY
     Route: 067
  5. PROGESTERONE. [Suspect]
     Active Substance: PROGESTERONE
     Indication: HORMONE REPLACEMENT THERAPY
     Dosage: 100 MG, QD
     Route: 030

REACTIONS (2)
  - Pregnancy [Unknown]
  - Ectopic pregnancy [Unknown]
